FAERS Safety Report 25374263 (Version 2)
Quarter: 2025Q2

REPORT INFORMATION
  Report Type: Spontaneous
  Country: US (occurrence: US)
  Receive Date: 20250529
  Receipt Date: 20250603
  Transmission Date: 20250717
  Serious: No
  Sender: Kenvue
  Company Number: US-KENVUE-20250509150

PATIENT
  Sex: Female

DRUGS (1)
  1. MENS ROGAINE EXTRA STRENGTH [Suspect]
     Active Substance: MINOXIDIL
     Indication: Alopecia
     Dosage: HALF CAPFUL, TWICE A DAY
     Route: 061
     Dates: start: 2023

REACTIONS (5)
  - Product use issue [Unknown]
  - Intentional product misuse [Unknown]
  - Poor quality product administered [Unknown]
  - Product container issue [Unknown]
  - Overdose [Unknown]

NARRATIVE: CASE EVENT DATE: 20230101
